FAERS Safety Report 4475253-4 (Version None)
Quarter: 2004Q3

REPORT INFORMATION
  Report Type: 
  Country: None (occurrence: None)
  Receive Date: 20040923
  Receipt Date: 20040624
  Transmission Date: 20050211
  Serious: No
  Sender: FDA-Public Use
  Company Number: USA040671076

PATIENT
  Age: 87 Year
  Sex: Female

DRUGS (11)
  1. FORTEO [Suspect]
     Indication: BONE DENSITY DECREASED
     Dates: start: 20040622
  2. TAMOXIFEN [Concomitant]
  3. ACCUPRIL [Concomitant]
     Indication: BONE DENSITY DECREASED
     Dates: start: 20040622
  4. TAMOXIFEN [Concomitant]
  5. ACCUPRIL [Concomitant]
  6. PREDNISONE [Concomitant]
  7. HYDROCHLORIDE [Concomitant]
  8. APO-METOPROLOL (METOPROLOL TARTRATE) [Concomitant]
  9. CITRACAL (CALCIUM CITRATE) [Concomitant]
  10. ASPIRIN [Concomitant]
  11. CITRYCEL (METHYLCELLULOSE) [Concomitant]

REACTIONS (4)
  - HEADACHE [None]
  - STOMACH DISCOMFORT [None]
  - URINE OUTPUT DECREASED [None]
  - VERTIGO [None]
